FAERS Safety Report 15027593 (Version 1)
Quarter: 2018Q2

REPORT INFORMATION
  Report Type: Spontaneous
  Country: US (occurrence: US)
  Receive Date: 20180525
  Receipt Date: 20180525
  Transmission Date: 20180711
  Serious: No
  Sender: FDA-Public Use
  Company Number: None

PATIENT

DRUGS (1)
  1. OLANZAPINE. [Suspect]
     Active Substance: OLANZAPINE

REACTIONS (23)
  - Pollakiuria [None]
  - Nausea [None]
  - Psychotic disorder [None]
  - Sleep disorder [None]
  - Increased appetite [None]
  - Delusion [None]
  - Weight increased [None]
  - Discharge [None]
  - Feeling hot [None]
  - Tardive dyskinesia [None]
  - Movement disorder [None]
  - Vomiting [None]
  - Breast swelling [None]
  - Hallucination [None]
  - Back pain [None]
  - Fatigue [None]
  - Pruritus [None]
  - Constipation [None]
  - Urinary incontinence [None]
  - Presyncope [None]
  - Speech disorder [None]
  - Confusional state [None]
  - Self-injurious ideation [None]
